FAERS Safety Report 11871409 (Version 1)
Quarter: 2015Q4

REPORT INFORMATION
  Report Type: Spontaneous
  Country: FR (occurrence: FR)
  Receive Date: 20151228
  Receipt Date: 20151228
  Transmission Date: 20160305
  Serious: Yes (Hospitalization)
  Sender: FDA-Public Use
  Company Number: FR-TEVA-620243ISR

PATIENT
  Age: 31 Year
  Sex: Female

DRUGS (5)
  1. ETOPOSIDE TEVA [Suspect]
     Active Substance: ETOPOSIDE
     Indication: B-CELL LYMPHOMA
     Dosage: FIRST COURSE OF R CYVE PROTOCOL
     Route: 041
     Dates: start: 20151018, end: 20151018
  2. CYTARABINE PFIZER [Suspect]
     Active Substance: CYTARABINE
     Dosage: 75 MG WITHIN 8 OR 12 HOURS AND THEN 3 GRAMS WITHIN 3 HOURS, SECOND COURSE OF R CYVE PROTOCOL
     Route: 042
     Dates: start: 201511, end: 201511
  3. ETOPOSIDE TEVA [Suspect]
     Active Substance: ETOPOSIDE
     Dosage: SECOND COURSE OF R CYVE PROTOCOL
     Route: 041
     Dates: start: 201511, end: 201511
  4. CYTARABINE PFIZER [Suspect]
     Active Substance: CYTARABINE
     Indication: B-CELL LYMPHOMA
     Dosage: FIRST COURSE OF R CYVE PROTOCOL
     Route: 042
     Dates: start: 20151018, end: 20151018
  5. RITUXIMAB [Concomitant]
     Active Substance: RITUXIMAB

REACTIONS (3)
  - Chills [Recovered/Resolved]
  - Hyperthermia [Recovered/Resolved]
  - C-reactive protein increased [Recovered/Resolved]

NARRATIVE: CASE EVENT DATE: 20151018
